FAERS Safety Report 8228321-5 (Version None)
Quarter: 2012Q1

REPORT INFORMATION
  Report Type: 
  Country: None (occurrence: None)
  Receive Date: 20120322
  Receipt Date: 20120314
  Transmission Date: 20120608
  Serious: Yes (Hospitalization)
  Sender: FDA-Public Use
  Company Number: FR-NOVOPROD-347520

PATIENT
  Age: 30 Year
  Sex: Female
  Weight: 86 kg

DRUGS (1)
  1. NOVOSEVEN [Suspect]
     Indication: FACTOR VII DEFICIENCY
     Route: 065
     Dates: start: 20120308

REACTIONS (4)
  - MATERNAL EXPOSURE DURING PREGNANCY [None]
  - CEREBROVASCULAR ACCIDENT [None]
  - PULMONARY EMBOLISM [None]
  - OVERDOSE [None]
